FAERS Safety Report 25868554 (Version 1)
Quarter: 2025Q4

REPORT INFORMATION
  Report Type: Other
  Country: GB (occurrence: GB)
  Receive Date: 20251001
  Receipt Date: 20251001
  Transmission Date: 20260117
  Serious: Yes (Other)
  Sender: MACLEODS
  Company Number: GB-MACLEODS PHARMA-MAC2025055404

PATIENT

DRUGS (2)
  1. ARIPIPRAZOLE [Suspect]
     Active Substance: ARIPIPRAZOLE
     Indication: Stress
     Dosage: 5MD OD (UNSURE ABOUT STOP DATE)
     Route: 065
     Dates: start: 2018, end: 2022
  2. CITALOPRAM [Concomitant]
     Active Substance: CITALOPRAM
     Indication: Depression suicidal
     Route: 065
     Dates: start: 2018, end: 2024

REACTIONS (3)
  - Remission not achieved [Not Recovered/Not Resolved]
  - Hypoaesthesia oral [Unknown]
  - Salivary hypersecretion [Unknown]
